FAERS Safety Report 5339764-1 (Version None)
Quarter: 2007Q2

REPORT INFORMATION
  Report Type: 
  Country: None (occurrence: None)
  Receive Date: 20070531
  Receipt Date: 20070522
  Transmission Date: 20071010
  Serious: Yes (Other)
  Sender: FDA-Public Use
  Company Number: PHEH2007US07847

PATIENT
  Age: 54 Year
  Sex: Female

DRUGS (1)
  1. TEKTURNA [Suspect]
     Indication: BLOOD PRESSURE
     Dosage: 150 MG, QD
     Dates: start: 20070410, end: 20070411

REACTIONS (5)
  - DIARRHOEA [None]
  - HAEMATURIA [None]
  - HEADACHE [None]
  - NAUSEA [None]
  - PYREXIA [None]
